FAERS Safety Report 10425614 (Version 1)
Quarter: 2014Q3

REPORT INFORMATION
  Report Type: Spontaneous
  Country: FR (occurrence: FR)
  Receive Date: 20140902
  Receipt Date: 20140902
  Transmission Date: 20150326
  Serious: Yes (Hospitalization, Disabling, Other)
  Sender: FDA-Public Use
  Company Number: FR-ROCHE-1452466

PATIENT
  Sex: Female

DRUGS (3)
  1. PEGASYS [Suspect]
     Active Substance: PEGINTERFERON ALFA-2A
     Indication: HEPATITIS C
     Route: 058
     Dates: start: 20121123, end: 20131025
  2. COPEGUS [Suspect]
     Active Substance: RIBAVIRIN
     Indication: HEPATITIS C
     Route: 065
     Dates: start: 20121123, end: 20131025
  3. VICTRELIS [Suspect]
     Active Substance: BOCEPREVIR
     Indication: HEPATITIS C
     Route: 048

REACTIONS (32)
  - Muscle spasms [Unknown]
  - Palpitations [Unknown]
  - Heart rate increased [Unknown]
  - Headache [Unknown]
  - Fatigue [Recovering/Resolving]
  - Haemorrhage [Unknown]
  - Photophobia [Recovering/Resolving]
  - Disturbance in attention [Recovering/Resolving]
  - Neutropenia [Recovering/Resolving]
  - Irritability [Recovering/Resolving]
  - Epistaxis [Unknown]
  - Dysgeusia [Unknown]
  - Panic attack [Recovering/Resolving]
  - Memory impairment [Unknown]
  - Liver injury [Unknown]
  - Hypothyroidism [Unknown]
  - Neck pain [Recovering/Resolving]
  - Depression [Recovering/Resolving]
  - Asthenia [Recovering/Resolving]
  - Pain [Unknown]
  - Thrombocytopenia [Unknown]
  - Malaise [Unknown]
  - Pelvic pain [Recovering/Resolving]
  - Visual impairment [Unknown]
  - No therapeutic response [Unknown]
  - Hepatic cirrhosis [Unknown]
  - Urinary tract infection [Unknown]
  - Insomnia [Recovering/Resolving]
  - Eye infection [Recovering/Resolving]
  - Influenza [Recovering/Resolving]
  - Hyperthermia [Recovering/Resolving]
  - Haemorrhage [Recovering/Resolving]
